FAERS Safety Report 10311096 (Version 1)
Quarter: 2014Q3

REPORT INFORMATION
  Report Type: Spontaneous
  Country: US (occurrence: None)
  Receive Date: 20140716
  Receipt Date: 20140716
  Transmission Date: 20150326
  Serious: Yes (Hospitalization)
  Sender: FDA-Public Use
  Company Number: None

PATIENT
  Age: 58 Year
  Sex: Male
  Weight: 77 kg

DRUGS (4)
  1. ASPIRIN. [Concomitant]
     Active Substance: ASPIRIN
  2. ACETAMINOPHEN. [Concomitant]
     Active Substance: ACETAMINOPHEN
  3. PIROXICAM. [Suspect]
     Active Substance: PIROXICAM
     Indication: OSTEOARTHRITIS
     Dosage: PRIOR TO ADMISSION, 20MG, QD, ORAL
     Route: 048
  4. METOPROLOL XL [Concomitant]
     Active Substance: METOPROLOL

REACTIONS (3)
  - Gastritis [None]
  - Gastritis erosive [None]
  - Duodenal ulcer [None]

NARRATIVE: CASE EVENT DATE: 20140126
